FAERS Safety Report 24388329 (Version 1)
Quarter: 2024Q4

REPORT INFORMATION
  Report Type: Spontaneous
  Country: TZ (occurrence: None)
  Receive Date: 20241002
  Receipt Date: 20241002
  Transmission Date: 20250114
  Serious: Yes (Other)
  Sender: ACS DOBFAR
  Company Number: TZ-ACS-20240388

PATIENT
  Sex: Female

DRUGS (1)
  1. CEFTRIAXONE [Suspect]
     Active Substance: CEFTRIAXONE
     Dosage: ()

REACTIONS (2)
  - Tachycardia [Unknown]
  - Maternal exposure during pregnancy [Unknown]
